FAERS Safety Report 12177829 (Version 1)
Quarter: 2016Q1

REPORT INFORMATION
  Report Type: Spontaneous
  Country: US (occurrence: US)
  Receive Date: 20160315
  Receipt Date: 20160315
  Transmission Date: 20160526
  Serious: No
  Sender: FDA-Public Use
  Company Number: US-RECORDATI RARE DISEASES-US-R13005-15-00130

PATIENT
  Age: 46 Year
  Sex: Female
  Weight: 68.1 kg

DRUGS (4)
  1. ZINC [Concomitant]
     Active Substance: ZINC\ZINC CHLORIDE
     Indication: PRODUCT USED FOR UNKNOWN INDICATION
     Route: 065
  2. CHEMET [Suspect]
     Active Substance: SUCCIMER
     Route: 048
     Dates: start: 20150819
  3. SELENIUM [Concomitant]
     Active Substance: SELENIUM
     Indication: PRODUCT USED FOR UNKNOWN INDICATION
     Route: 065
  4. CHEMET [Suspect]
     Active Substance: SUCCIMER
     Indication: METAL POISONING
     Route: 048
     Dates: start: 20150730

REACTIONS (10)
  - Swelling [Recovering/Resolving]
  - Erythema [Recovering/Resolving]
  - Pruritus [Recovering/Resolving]
  - Cheilitis [Not Recovered/Not Resolved]
  - Off label use [Recovered/Resolved]
  - Hypersensitivity [Recovering/Resolving]
  - Vulvovaginal pruritus [Recovered/Resolved]
  - Inflammation [Recovering/Resolving]
  - Paraesthesia [Recovering/Resolving]
  - Glossodynia [Not Recovered/Not Resolved]

NARRATIVE: CASE EVENT DATE: 20150730
